FAERS Safety Report 8071484-5 (Version None)
Quarter: 2012Q1

REPORT INFORMATION
  Report Type: 
  Country: None (occurrence: None)
  Receive Date: 20120125
  Receipt Date: 20120123
  Transmission Date: 20120608
  Serious: Yes (Hospitalization, Other)
  Sender: FDA-Public Use
  Company Number: US-AMGEN-USASP2011039571

PATIENT
  Age: 19 Year
  Sex: Male
  Weight: 47.2 kg

DRUGS (17)
  1. NPLATE [Suspect]
  2. MAGNESIUM OXIDE [Concomitant]
     Dosage: 400 MG, UNK
     Route: 048
  3. VINORELBINE [Concomitant]
     Dosage: 37 MG, UNK
     Route: 042
  4. BACTRIM [Concomitant]
  5. ACYCLOVIR [Concomitant]
     Indication: PROPHYLAXIS
     Dosage: 800 MG, BID
     Route: 048
  6. METRONIDAZOLE [Concomitant]
     Dosage: 500 MG, TID
  7. METHYLPREDNISOLONE [Concomitant]
     Indication: IDIOPATHIC THROMBOCYTOPENIC PURPURA
     Dosage: 8 MG, QD
     Route: 048
  8. NPLATE [Suspect]
  9. ATROPINE [Concomitant]
     Indication: DIARRHOEA
     Dosage: 0.025 MG, Q6H
     Route: 048
  10. NPLATE [Suspect]
  11. NPLATE [Suspect]
  12. IRINOTECAN HCL [Concomitant]
     Dosage: 10 MG/M2, UNK
     Route: 042
  13. NPLATE [Suspect]
     Indication: IDIOPATHIC THROMBOCYTOPENIC PURPURA
     Dosage: 63 MUG, QWK
     Route: 058
     Dates: start: 20100913
  14. NPLATE [Suspect]
  15. RANTIDINE [Concomitant]
     Dosage: 150 MG, BID
     Route: 048
  16. TACROLIMUS [Concomitant]
     Indication: IMMUNOSUPPRESSANT DRUG THERAPY
     Dosage: 1.5 MG, UNK
     Route: 048
  17. GAMUNEX [Concomitant]
     Dosage: 60 G, UNK
     Route: 042

REACTIONS (10)
  - STENT PLACEMENT [None]
  - VISUAL IMPAIRMENT [None]
  - DEHYDRATION [None]
  - PNEUMONIA [None]
  - CLOSTRIDIUM TEST POSITIVE [None]
  - PYREXIA [None]
  - METASTASES TO BONE [None]
  - GASTROSTOMY TUBE INSERTION [None]
  - TUMOUR INVASION [None]
  - STENT REMOVAL [None]
